FAERS Safety Report 10168520 (Version 2)
Quarter: 2014Q3

REPORT INFORMATION
  Report Type: Spontaneous
  Country: AU (occurrence: AU)
  Receive Date: 20140513
  Receipt Date: 20140806
  Transmission Date: 20150326
  Serious: Yes (Hospitalization, Other)
  Sender: FDA-Public Use
  Company Number: AU-PFIZER INC-2014125549

PATIENT
  Age: 8 Year
  Sex: Male
  Weight: 30.7 kg

DRUGS (5)
  1. PREDNISOLONE. [Concomitant]
     Active Substance: PREDNISOLONE
     Indication: RENAL FAILURE
     Dosage: 5 MG, DAILY
     Route: 048
     Dates: start: 20071009
  2. EPREX [Concomitant]
     Active Substance: ERYTHROPOIETIN
     Indication: RENAL FAILURE
     Dosage: 4000 IU, WEEKLY
     Route: 058
     Dates: start: 20080312
  3. TACROLIMUS. [Concomitant]
     Active Substance: TACROLIMUS
     Indication: RENAL FAILURE
     Dosage: 1.75 MG, 2X/DAY
     Route: 048
     Dates: start: 20071009
  4. AZATHIOPRINE. [Concomitant]
     Active Substance: AZATHIOPRINE
     Indication: RENAL FAILURE
     Dosage: 25 MG, DAILY
     Route: 048
     Dates: start: 20071016
  5. GENOTROPIN [Suspect]
     Active Substance: SOMATROPIN
     Indication: BODY HEIGHT BELOW NORMAL
     Dosage: 1.58 MG, X 6 DAYS
     Route: 058
     Dates: start: 20100525

REACTIONS (2)
  - Tympanic membrane perforation [Recovered/Resolved]
  - Auricular swelling [Recovered/Resolved]

NARRATIVE: CASE EVENT DATE: 20140423
